FAERS Safety Report 5979082-1 (Version None)
Quarter: 2008Q4

REPORT INFORMATION
  Report Type: 
  Country: None (occurrence: None)
  Receive Date: 20081126
  Receipt Date: 20080204
  Transmission Date: 20090506
  Serious: Yes (Hospitalization)
  Sender: FDA-Public Use
  Company Number: 2008BH001114

PATIENT
  Age: 79 Year
  Sex: Female

DRUGS (14)
  1. DIANEAL [Suspect]
     Indication: PERITONEAL DIALYSIS
     Dosage: 12 L;EVERY DAY;IP
     Route: 033
     Dates: start: 20070101
  2. ASPIRIN [Concomitant]
  3. AVAPRO [Concomitant]
  4. BACTROBAN [Concomitant]
  5. DARVOCET-N 100 [Concomitant]
  6. EPOGEN [Concomitant]
  7. FOSRENOL [Concomitant]
  8. HECTOROL [Concomitant]
  9. KLONOPIN [Concomitant]
  10. LACTULOSE [Concomitant]
  11. LOPRESSOR [Concomitant]
  12. NEPHROCAPS [Concomitant]
  13. NIFEREX [Concomitant]
  14. ZETIA [Concomitant]

REACTIONS (1)
  - PERITONITIS BACTERIAL [None]
